FAERS Safety Report 23697228 (Version 2)
Quarter: 2024Q2

REPORT INFORMATION
  Report Type: Spontaneous
  Country: US (occurrence: US)
  Receive Date: 20240402
  Receipt Date: 20240424
  Transmission Date: 20240716
  Serious: No
  Sender: FDA-Public Use
  Company Number: US-ABBVIE-5700542

PATIENT
  Age: 48 Year
  Sex: Male
  Weight: 95 kg

DRUGS (2)
  1. VRAYLAR [Suspect]
     Active Substance: CARIPRAZINE
     Indication: Bipolar disorder
     Dosage: STRENGTH: 3 MILLIGRAM
     Route: 048
     Dates: start: 20240314, end: 20240323
  2. BUPRENORPHINE [Concomitant]
     Active Substance: BUPRENORPHINE
     Indication: Anxiety

REACTIONS (3)
  - Concussion [Unknown]
  - Accident [Unknown]
  - Vision blurred [Unknown]

NARRATIVE: CASE EVENT DATE: 20240301
